FAERS Safety Report 18749963 (Version 2)
Quarter: 2021Q1

REPORT INFORMATION
  Report Type: Spontaneous
  Country: US (occurrence: US)
  Receive Date: 20210118
  Receipt Date: 20210222
  Transmission Date: 20210419
  Serious: No
  Sender: FDA-Public Use
  Company Number: US-ASTRAZENECA-2021A003710

PATIENT
  Age: 28465 Day
  Sex: Female
  Weight: 59 kg

DRUGS (1)
  1. BREZTRI AEROSPHERE [Suspect]
     Active Substance: BUDESONIDE\FORMOTEROL\GLYCOPYRRONIUM
     Indication: CHRONIC OBSTRUCTIVE PULMONARY DISEASE
     Dosage: 160?9?4.8 MCG, 2 PUFFS
     Route: 055
     Dates: start: 20210101

REACTIONS (3)
  - Product use issue [Recovered/Resolved]
  - Irritability [Recovered/Resolved]
  - Tremor [Recovered/Resolved]

NARRATIVE: CASE EVENT DATE: 20210101
